FAERS Safety Report 16078969 (Version 2)
Quarter: 2019Q1

REPORT INFORMATION
  Report Type: Spontaneous
  Country: GB (occurrence: GB)
  Receive Date: 20190315
  Receipt Date: 20190324
  Transmission Date: 20190418
  Serious: Yes (Other)
  Sender: FDA-Public Use
  Company Number: GB-ELI_LILLY_AND_COMPANY-GB201903005014

PATIENT
  Age: 60 Year
  Sex: Male

DRUGS (4)
  1. AVAMYS [Concomitant]
     Active Substance: FLUTICASONE FUROATE
     Indication: EUSTACHIAN TUBE DYSFUNCTION
     Dosage: UNK, UNKNOWN
     Route: 065
  2. PROZAC [Suspect]
     Active Substance: FLUOXETINE HYDROCHLORIDE
     Indication: DEPRESSION
     Dosage: UNK UNK, UNKNOWN
     Route: 065
  3. FLUOXETINE [Suspect]
     Active Substance: FLUOXETINE HYDROCHLORIDE
     Indication: DEPRESSION
     Dosage: UNK UNK, UNKNOWN
     Route: 048
  4. LORATADINE. [Interacting]
     Active Substance: LORATADINE
     Indication: EYE PRURITUS
     Dosage: 10 MG, UNKNOWN
     Route: 065

REACTIONS (5)
  - Epilepsy [Recovered/Resolved]
  - Muscle spasms [Recovered/Resolved]
  - Drug interaction [Unknown]
  - Sleep disorder [Unknown]
  - Seizure [Recovered/Resolved]

NARRATIVE: CASE EVENT DATE: 20190202
